FAERS Safety Report 25099990 (Version 2)
Quarter: 2025Q3

REPORT INFORMATION
  Report Type: Spontaneous
  Country: US (occurrence: US)
  Receive Date: 20250320
  Receipt Date: 20250722
  Transmission Date: 20251020
  Serious: No
  Sender: SANOFI AVENTIS
  Company Number: US-SA-2025SA080365

PATIENT
  Age: 62 Year
  Sex: Male
  Weight: 140 kg

DRUGS (17)
  1. DUPIXENT [Suspect]
     Active Substance: DUPILUMAB
     Indication: Dermatitis atopic
     Dosage: 300MG/2ML, QOW
     Route: 058
     Dates: start: 20250313, end: 20250313
  2. DUPIXENT [Suspect]
     Active Substance: DUPILUMAB
     Indication: Product used for unknown indication
  3. MONTELUKAST SODIUM [Concomitant]
     Active Substance: MONTELUKAST SODIUM
  4. BUPROPION [Concomitant]
     Active Substance: BUPROPION
  5. MONTELUKAST SODIUM [Concomitant]
     Active Substance: MONTELUKAST SODIUM
  6. MUPIROCIN [Concomitant]
     Active Substance: MUPIROCIN
  7. METOPROLOL SUCCINATE [Concomitant]
     Active Substance: METOPROLOL SUCCINATE
  8. FLUOCINOLONE ACETONIDE [Concomitant]
     Active Substance: FLUOCINOLONE ACETONIDE
  9. FUROSEMIDE [Concomitant]
     Active Substance: FUROSEMIDE
  10. VITAMIN C [Concomitant]
     Active Substance: ASCORBIC ACID
  11. HYDROCODONE BITARTRATE AND ACETAMINOPHEN [Concomitant]
     Active Substance: ACETAMINOPHEN\HYDROCODONE BITARTRATE
  12. DICLOFENAC SODIUM [Concomitant]
     Active Substance: DICLOFENAC SODIUM
  13. VITAMIN C [Concomitant]
     Active Substance: ASCORBIC ACID
  14. GLUCOSAMINE SULFATE [Concomitant]
     Active Substance: GLUCOSAMINE SULFATE
  15. VITAMIN D3 [Concomitant]
     Active Substance: CHOLECALCIFEROL
  16. VITAMIN B12 [Concomitant]
     Active Substance: CYANOCOBALAMIN
  17. GABAPENTIN [Concomitant]
     Active Substance: GABAPENTIN

REACTIONS (2)
  - Feeling abnormal [Unknown]
  - Carpal tunnel decompression [Unknown]

NARRATIVE: CASE EVENT DATE: 20250313
